FAERS Safety Report 16052376 (Version 2)
Quarter: 2019Q1

REPORT INFORMATION
  Report Type: Report from Study
  Country: None (occurrence: ES)
  Receive Date: 20190308
  Receipt Date: 20190312
  Transmission Date: 20190418
  Serious: Yes (Hospitalization, Other)
  Sender: FDA-Public Use
  Company Number: ES-ABBVIE-19S-144-2691357-00

PATIENT
  Age: 65 Year
  Sex: Female
  Weight: 55 kg

DRUGS (1)
  1. DUODOPA [Suspect]
     Active Substance: CARBIDOPA\LEVODOPA
     Indication: PARKINSON^S DISEASE
     Route: 050
     Dates: start: 20190227

REACTIONS (5)
  - Musculoskeletal pain [Recovered/Resolved]
  - Dyskinesia [Recovered/Resolved]
  - Pneumoperitoneum [Recovered/Resolved]
  - Stoma site discharge [Recovering/Resolving]
  - Stoma site pain [Recovering/Resolving]

NARRATIVE: CASE EVENT DATE: 20190228
